FAERS Safety Report 17523722 (Version 2)
Quarter: 2020Q1

REPORT INFORMATION
  Report Type: Spontaneous
  Country: US (occurrence: US)
  Receive Date: 20200310
  Receipt Date: 20200317
  Transmission Date: 20200409
  Serious: Yes (Other)
  Sender: FDA-Public Use
  Company Number: US-PFIZER INC-2020102444

PATIENT
  Age: 75 Year
  Sex: Female
  Weight: 54.43 kg

DRUGS (5)
  1. FLECTOR [Suspect]
     Active Substance: DICLOFENAC EPOLAMINE
     Indication: OSTEOARTHRITIS
  2. DICLOFENAC SODIUM. [Concomitant]
     Active Substance: DICLOFENAC SODIUM
     Dosage: 75 MG, UNK
  3. DICLOFENAC SODIUM. [Concomitant]
     Active Substance: DICLOFENAC SODIUM
     Dosage: UNK
  4. FLECTOR [Suspect]
     Active Substance: DICLOFENAC EPOLAMINE
     Indication: PSORIASIS
     Dosage: UNK (ONE PATCH EVERY 12 HOURS ON AND 12 HRS OFF)
     Dates: start: 201908
  5. TYLENOL [Concomitant]
     Active Substance: ACETAMINOPHEN
     Dosage: 500 MG, 4X/DAY

REACTIONS (6)
  - Renal disorder [Recovered/Resolved]
  - Arthralgia [Unknown]
  - Off label use [Unknown]
  - Musculoskeletal pain [Unknown]
  - Pain [Unknown]
  - Product use in unapproved indication [Unknown]
